FAERS Safety Report 10344274 (Version 10)
Quarter: 2015Q3

REPORT INFORMATION
  Report Type: Report from Study
  Country: AU (occurrence: AU)
  Receive Date: 20140728
  Receipt Date: 20150807
  Transmission Date: 20151125
  Serious: Yes (Hospitalization)
  Sender: FDA-Public Use
  Company Number: AU-ROCHE-1441513

PATIENT
  Age: 54 Year
  Sex: Female
  Weight: 69 kg

DRUGS (11)
  1. BENDAMUSTINE [Suspect]
     Active Substance: BENDAMUSTINE
     Indication: NON-HODGKIN^S LYMPHOMA UNSPECIFIED HISTOLOGY INDOLENT
     Dosage: DATE OF LAST DOSE (163.8 MG) PRIOR TO SAE ONSET: 05/OCT/2013.
     Route: 042
     Dates: start: 20130517, end: 20131005
  2. SPAN K [Concomitant]
     Indication: HYPOKALAEMIA
     Route: 065
     Dates: start: 20140727, end: 20140727
  3. NEUPOGEN [Concomitant]
     Active Substance: FILGRASTIM
     Indication: NEUTROPENIA
     Route: 065
     Dates: start: 20140227
  4. OBINUTUZUMAB [Suspect]
     Active Substance: OBINUTUZUMAB
     Indication: NON-HODGKIN^S LYMPHOMA UNSPECIFIED HISTOLOGY INDOLENT
     Dosage: DATE OF MOST RECENT DOSE (VOLUME: 250 ML AND DOSE CONCENTRATION:4MG/ML) PRIOR TO AE ONSET : 11/JUL/2
     Route: 042
     Dates: start: 20130516
  5. CHLORVESCENT [Concomitant]
     Active Substance: POTASSIUM CHLORIDE
     Indication: HYPOKALAEMIA
     Route: 065
     Dates: start: 20140727, end: 20140727
  6. ENDEP [Concomitant]
     Active Substance: AMITRIPTYLINE HYDROCHLORIDE
     Indication: DEPRESSION
  7. PARACETAMOL [Concomitant]
     Active Substance: ACETAMINOPHEN
     Indication: INFUSION RELATED REACTION
     Route: 065
     Dates: start: 20130516, end: 20140711
  8. LORATADINE. [Concomitant]
     Active Substance: LORATADINE
     Indication: INFUSION RELATED REACTION
     Route: 065
     Dates: start: 20130516, end: 20140711
  9. NEUPOGEN [Concomitant]
     Active Substance: FILGRASTIM
     Indication: FEBRILE NEUTROPENIA
     Route: 065
     Dates: start: 20140727, end: 20140729
  10. AMOXICILLIN/CLAVULANIC ACID [Concomitant]
     Active Substance: AMOXICILLIN\CLAVULANIC ACID
     Indication: UPPER RESPIRATORY TRACT INFECTION
     Route: 065
     Dates: start: 20140709, end: 201407
  11. VENTOLIN [Concomitant]
     Active Substance: ALBUTEROL SULFATE
     Indication: ASTHMA

REACTIONS (1)
  - Febrile neutropenia [Recovered/Resolved]

NARRATIVE: CASE EVENT DATE: 20140727
